FAERS Safety Report 13007513 (Version 3)
Quarter: 2017Q1

REPORT INFORMATION
  Report Type: Spontaneous
  Country: US (occurrence: US)
  Receive Date: 20161207
  Receipt Date: 20170105
  Transmission Date: 20170428
  Serious: Yes (Other)
  Sender: FDA-Public Use
  Company Number: US-ACTELION-A-US2016-145584

PATIENT
  Age: 52 Year
  Sex: Male
  Weight: 107 kg

DRUGS (14)
  1. AMBRISENTAN [Suspect]
     Active Substance: AMBRISENTAN
     Indication: PULMONARY ARTERIAL HYPERTENSION
     Dosage: 10 MG, QD
     Route: 065
     Dates: start: 20160502, end: 20161206
  2. POTASSIUM [Concomitant]
     Active Substance: POTASSIUM
  3. SILDENAFIL. [Concomitant]
     Active Substance: SILDENAFIL
  4. ASPIRIN. [Concomitant]
     Active Substance: ASPIRIN
  5. JANTOVEN [Concomitant]
     Active Substance: WARFARIN SODIUM
  6. MULTIVITAMIN [Concomitant]
     Active Substance: VITAMINS
  7. UPTRAVI [Suspect]
     Active Substance: SELEXIPAG
     Indication: PULMONARY ARTERIAL HYPERTENSION
     Dosage: 800 MCG, UNK
     Route: 048
  8. WARFARIN SODIUM. [Concomitant]
     Active Substance: WARFARIN SODIUM
  9. DIGOXIN. [Concomitant]
     Active Substance: DIGOXIN
  10. RAMIPRIL. [Concomitant]
     Active Substance: RAMIPRIL
  11. CARVEDILOL. [Concomitant]
     Active Substance: CARVEDILOL
  12. ATORVASTATIN CALCIUM. [Concomitant]
     Active Substance: ATORVASTATIN CALCIUM
  13. TORSEMIDE. [Concomitant]
     Active Substance: TORSEMIDE
  14. KLOR-CON [Concomitant]
     Active Substance: POTASSIUM CHLORIDE

REACTIONS (2)
  - Pneumonia [Not Recovered/Not Resolved]
  - Headache [Not Recovered/Not Resolved]

NARRATIVE: CASE EVENT DATE: 20161104
